FAERS Safety Report 5598613-7 (Version None)
Quarter: 2008Q1

REPORT INFORMATION
  Report Type: 
  Country: None (occurrence: None)
  Receive Date: 20080122
  Receipt Date: 20070531
  Transmission Date: 20080703
  Serious: No
  Sender: FDA-Public Use
  Company Number: US-BAUSCH-2007BL001790

PATIENT
  Age: 59 Year
  Sex: Female

DRUGS (13)
  1. DESMOPRESSIN ACETATE [Suspect]
     Indication: HYPOTHYROIDISM
     Route: 045
     Dates: start: 20070501, end: 20070531
  2. LEVOTHYROXINE SODIUM [Concomitant]
  3. PREDNISONE [Concomitant]
  4. ACTONEL /USA/ [Concomitant]
  5. TENORMIN /NEZ/ [Concomitant]
  6. AMBIEN [Concomitant]
  7. POTASSIUM CHLORIDE [Concomitant]
  8. ASCORBIC ACID [Concomitant]
  9. VITAMIN CAP [Concomitant]
  10. PROMENSIL [Concomitant]
  11. GLUCOSAMINE W/CHONDROITIN [Concomitant]
  12. CALTRATE + D [Concomitant]
  13. MELATONIN [Concomitant]

REACTIONS (2)
  - DRUG INEFFECTIVE [None]
  - THIRST [None]
